FAERS Safety Report 10824767 (Version 3)
Quarter: 2015Q1

REPORT INFORMATION
  Report Type: Spontaneous
  Country: JP (occurrence: JP)
  Receive Date: 20150219
  Receipt Date: 20150324
  Transmission Date: 20150721
  Serious: Yes (Other)
  Sender: FDA-Public Use
  Company Number: JP-ROCHE-1540405

PATIENT
  Age: 76 Year
  Sex: Male
  Weight: 55 kg

DRUGS (3)
  1. ACTEMRA [Suspect]
     Active Substance: TOCILIZUMAB
     Indication: RHEUMATOID ARTHRITIS
     Dosage: DOSAGE IS UNCERTAIN.
     Route: 041
     Dates: start: 20121115, end: 20141120
  2. PREDONINE [Concomitant]
     Active Substance: PREDNISOLONE\PREDNISOLONE ACETATE\PREDNISOLONE SODIUM SUCCINATE
     Route: 065
     Dates: start: 200808
  3. KLARICID [Concomitant]
     Active Substance: CLARITHROMYCIN
     Dosage: AMOUNT OF 1 ONCE ADMINISTRATION: 200 (UNIT UNCERTAINTY)
     Route: 048

REACTIONS (2)
  - Interstitial lung disease [Not Recovered/Not Resolved]
  - Cardiac failure chronic [Not Recovered/Not Resolved]

NARRATIVE: CASE EVENT DATE: 20141120
